FAERS Safety Report 9912581 (Version 1)
Quarter: 2014Q1

REPORT INFORMATION
  Report Type: Spontaneous
  Country: US (occurrence: None)
  Receive Date: 20140218
  Receipt Date: 20140218
  Transmission Date: 20141002
  Serious: Yes (Other)
  Sender: FDA-Public Use
  Company Number: None

PATIENT
  Age: 65 Year
  Sex: Female

DRUGS (3)
  1. VELCADE MILLENNIUM [Suspect]
     Indication: PLASMA CELL MYELOMA
  2. REVLIMID CELGENE [Suspect]
     Indication: PLASMA CELL MYELOMA
  3. DEXAMETHASONE [Concomitant]

REACTIONS (3)
  - Femur fracture [None]
  - Upper limb fracture [None]
  - Gastrointestinal disorder [None]
